FAERS Safety Report 5946991-9 (Version None)
Quarter: 2008Q4

REPORT INFORMATION
  Report Type: 
  Country: None (occurrence: None)
  Receive Date: 20081107
  Receipt Date: 20081107
  Transmission Date: 20090506
  Serious: Yes (Hospitalization, Other)
  Sender: FDA-Public Use
  Company Number: None

PATIENT
  Age: 22 Year
  Sex: Female
  Weight: 55.3388 kg

DRUGS (1)
  1. MIRENA [Suspect]
     Indication: CONTRACEPTION
     Dosage: INSTALLED
     Dates: start: 20060308

REACTIONS (11)
  - ABDOMINAL PAIN [None]
  - AMENORRHOEA [None]
  - AMNESIA [None]
  - ANXIETY [None]
  - DEHYDRATION [None]
  - EAR INFECTION [None]
  - FATIGUE [None]
  - HOT FLUSH [None]
  - HYPERSOMNIA [None]
  - MUSCLE SPASMS [None]
  - SWEAT GLAND DISORDER [None]
